FAERS Safety Report 8099543-1 (Version None)
Quarter: 2012Q1

REPORT INFORMATION
  Report Type: 
  Country: None (occurrence: None)
  Receive Date: 20120129
  Receipt Date: 20110927
  Transmission Date: 20120608
  Serious: No
  Sender: FDA-Public Use
  Company Number: US-ABBOTT-11P-163-0858193-00

PATIENT
  Sex: Female
  Weight: 65.83 kg

DRUGS (4)
  1. PROZAC [Concomitant]
     Indication: ANXIETY
  2. WELLBUTRIN [Concomitant]
     Indication: ANXIETY
  3. HUMIRA [Suspect]
     Indication: CROHN'S DISEASE
     Dates: start: 20110922, end: 20110922
  4. SEASONIQUE [Concomitant]
     Indication: MENSTRUATION IRREGULAR

REACTIONS (2)
  - ABDOMINAL PAIN [None]
  - DRUG INEFFECTIVE [None]
